FAERS Safety Report 11058747 (Version 1)
Quarter: 2015Q2

REPORT INFORMATION
  Report Type: Spontaneous
  Country: US (occurrence: None)
  Receive Date: 20150422
  Receipt Date: 20150422
  Transmission Date: 20150821
  Serious: Yes (Hospitalization)
  Sender: FDA-Public Use
  Company Number: None

PATIENT
  Age: 62 Year
  Sex: Female
  Weight: 52.7 kg

DRUGS (3)
  1. DIAZEPAM. [Suspect]
     Active Substance: DIAZEPAM
     Indication: BIPOLAR DISORDER
     Route: 048
     Dates: start: 20150205, end: 20150414
  2. DIAZEPAM. [Suspect]
     Active Substance: DIAZEPAM
     Indication: MANIA
     Route: 048
     Dates: start: 20150205, end: 20150414
  3. MORPHINE [Suspect]
     Active Substance: MORPHINE
     Indication: PAIN
     Route: 048
     Dates: start: 20150413, end: 20150414

REACTIONS (9)
  - Pneumonia [None]
  - Lethargy [None]
  - Constipation [None]
  - Confusional state [None]
  - Sedation [None]
  - Mental status changes [None]
  - Pyrexia [None]
  - Cough [None]
  - Somnolence [None]

NARRATIVE: CASE EVENT DATE: 20150414
